FAERS Safety Report 8606010-2 (Version None)
Quarter: 2012Q3

REPORT INFORMATION
  Report Type: 
  Country: None (occurrence: None)
  Receive Date: 20120820
  Receipt Date: 20120817
  Transmission Date: 20120928
  Serious: No
  Sender: FDA-Public Use
  Company Number: US-TEVA-354402USA

PATIENT
  Sex: Female
  Weight: 79.45 kg

DRUGS (1)
  1. PROAIR HFA [Suspect]
     Indication: BRONCHITIS
     Dosage: 180 MICROGRAM DAILY; 2 PUFFS

REACTIONS (3)
  - NASAL CONGESTION [None]
  - EAR CONGESTION [None]
  - DYSPHONIA [None]
